FAERS Safety Report 20151138 (Version 1)
Quarter: 2021Q4

REPORT INFORMATION
  Report Type: Spontaneous
  Country: US (occurrence: None)
  Receive Date: 20211204
  Receipt Date: 20211204
  Transmission Date: 20220304
  Serious: Yes (Hospitalization)
  Sender: FDA-Public Use
  Company Number: None

PATIENT
  Age: 51 Year
  Sex: Male

DRUGS (1)
  1. REVLIMID [Suspect]
     Active Substance: LENALIDOMIDE
     Indication: Plasma cell myeloma
     Dosage: FREQUENCY : DAILY;?
     Dates: start: 20180326

REACTIONS (4)
  - Confusional state [None]
  - Aphasia [None]
  - Dysarthria [None]
  - Transient ischaemic attack [None]

NARRATIVE: CASE EVENT DATE: 20211201
